FAERS Safety Report 4315626-3 (Version None)
Quarter: 2004Q1

REPORT INFORMATION
  Report Type: 
  Country: None (occurrence: None)
  Receive Date: 20040311
  Receipt Date: 20040301
  Transmission Date: 20041129
  Serious: Yes (Hospitalization)
  Sender: FDA-Public Use
  Company Number: US-GLAXOSMITHKLINE-A0502239A

PATIENT
  Age: 41 Year
  Sex: Female

DRUGS (1)
  1. PAXIL [Suspect]

REACTIONS (19)
  - AGEUSIA [None]
  - ANOSMIA [None]
  - ANXIETY [None]
  - CONFUSIONAL STATE [None]
  - DIZZINESS [None]
  - DRUG WITHDRAWAL SYNDROME [None]
  - EMOTIONAL DISTRESS [None]
  - EYE INJURY [None]
  - FACE INJURY [None]
  - FEELING OF DESPAIR [None]
  - GUN SHOT WOUND [None]
  - HYPERACUSIS [None]
  - INSOMNIA [None]
  - IRRITABILITY [None]
  - MOUTH INJURY [None]
  - NIGHT SWEATS [None]
  - PHOTOSENSITIVITY REACTION [None]
  - SUICIDAL IDEATION [None]
  - SUICIDE ATTEMPT [None]
